FAERS Safety Report 8835288 (Version 2)
Quarter: 2012Q4

REPORT INFORMATION
  Report Type: 
  Country: NZ (occurrence: NZ)
  Receive Date: 20121011
  Receipt Date: 20121129
  Transmission Date: 20130627
  Serious: Yes (Death, Life-Threatening, Hospitalization, Other)
  Sender: FDA-Public Use
  Company Number: NZ-B.I. PHARMACEUTICALS,INC./RIDGEFIELD-2012-AU-01727AU

PATIENT
  Age: 67 Year
  Sex: Male

DRUGS (6)
  1. PRADAXA [Suspect]
     Indication: ATRIAL FIBRILLATION
     Dosage: 300 mg
     Dates: start: 20110818
  2. DIGOXIN [Concomitant]
     Dosage: 250 mcg
     Dates: start: 200806
  3. DILTIAZEM CD [Concomitant]
     Dosage: 240 mcg
     Dates: start: 200806
  4. QUINAPRIL [Concomitant]
     Dosage: 20 mg
     Dates: start: 2006
  5. SYMBICORT [Concomitant]
  6. BRICANYL [Concomitant]

REACTIONS (9)
  - Cerebrovascular accident [Fatal]
  - Intestinal ischaemia [Fatal]
  - Mesenteric artery thrombosis [Fatal]
  - Peritonitis [Unknown]
  - Acute respiratory distress syndrome [Unknown]
  - Pneumonia aspiration [Unknown]
  - Hemiparesis [Unknown]
  - Aphasia [Unknown]
  - Dysarthria [Unknown]
